FAERS Safety Report 14263084 (Version 2)
Quarter: 2018Q1

REPORT INFORMATION
  Report Type: Spontaneous
  Country: JP (occurrence: JP)
  Receive Date: 20171208
  Receipt Date: 20180101
  Transmission Date: 20180508
  Serious: Yes (Hospitalization, Other)
  Sender: FDA-Public Use
  Company Number: JP-ASTELLAS-2017JP004155

PATIENT
  Age: 83 Year
  Sex: Male
  Weight: 61 kg

DRUGS (9)
  1. GONAX [Concomitant]
     Active Substance: DEGARELIX
     Indication: PROSTATE CANCER
     Route: 058
     Dates: start: 20130822
  2. ALLOID G [Concomitant]
     Active Substance: SODIUM ALGINATE
     Indication: RADIATION OESOPHAGITIS
     Route: 048
     Dates: start: 20170106, end: 20170228
  3. RANMARK [Concomitant]
     Active Substance: DENOSUMAB
     Indication: OSTEOMA
     Route: 058
     Dates: start: 20161215
  4. PASETOCIN                          /00249602/ [Concomitant]
     Active Substance: AMOXICILLIN
     Indication: GINGIVITIS
     Route: 048
     Dates: start: 20170120, end: 20170124
  5. DENOTAS [Concomitant]
     Active Substance: CALCIUM CARBONATE\CHOLECALCIFEROL\MAGNESIUM CARBONATE
     Indication: HYPOCALCAEMIA
     Route: 048
     Dates: start: 20161215
  6. XTANDI [Suspect]
     Active Substance: ENZALUTAMIDE
     Route: 048
     Dates: start: 20170316
  7. COCARL [Concomitant]
     Active Substance: ACETAMINOPHEN
     Indication: GINGIVITIS
     Route: 048
     Dates: start: 20170120
  8. AMLODIPINE                         /00972402/ [Concomitant]
     Active Substance: AMLODIPINE BESYLATE
     Indication: HYPERTENSION
     Route: 048
  9. XTANDI [Suspect]
     Active Substance: ENZALUTAMIDE
     Indication: HORMONE-REFRACTORY PROSTATE CANCER
     Route: 048
     Dates: start: 20161215, end: 20170301

REACTIONS (4)
  - Intentional underdose [Unknown]
  - Performance status decreased [Recovered/Resolved]
  - Gingivitis [Recovered/Resolved]
  - Myocarditis [Recovered/Resolved]

NARRATIVE: CASE EVENT DATE: 20161215
